FAERS Safety Report 4977733-1 (Version None)
Quarter: 2006Q2

REPORT INFORMATION
  Report Type: 
  Country: None (occurrence: None)
  Receive Date: 20060414
  Receipt Date: 20060410
  Transmission Date: 20061013
  Serious: Yes (Death, Life-Threatening, Hospitalization)
  Sender: FDA-Public Use
  Company Number: HQWYE730710APR06

PATIENT
  Age: 78 Year
  Sex: Male

DRUGS (3)
  1. CORDAREX (AMIODARONE, TABLET) [Suspect]
     Indication: BRADYARRHYTHMIA
     Dosage: 400 MG 1X PER 1 DAY
     Route: 048
     Dates: start: 20051101
  2. KARVEZIDE (IRBESARTAN/HYDROCHLOROTHIAZIDE) [Concomitant]
  3. NEBIVOLOL HCL [Concomitant]

REACTIONS (6)
  - ENTEROBACTER INFECTION [None]
  - INTERSTITIAL LUNG DISEASE [None]
  - LOWER RESPIRATORY TRACT INFECTION BACTERIAL [None]
  - LUNG INFECTION [None]
  - PULMONARY FIBROSIS [None]
  - RESPIRATORY FAILURE [None]
